FAERS Safety Report 4952552-0 (Version None)
Quarter: 2006Q1

REPORT INFORMATION
  Report Type: 
  Country: None (occurrence: None)
  Receive Date: 20060323
  Receipt Date: 20060210
  Transmission Date: 20060701
  Serious: Yes (Other)
  Sender: FDA-Public Use
  Company Number: US-MERCK-0602USA04274

PATIENT
  Age: 51 Year
  Sex: Female

DRUGS (1)
  1. HYDROCORTONE [Suspect]
     Route: 048

REACTIONS (4)
  - FUNGAL INFECTION [None]
  - HYPERGLYCAEMIA [None]
  - NECROSIS ISCHAEMIC [None]
  - POST PROCEDURAL COMPLICATION [None]
